FAERS Safety Report 8168287-X (Version None)
Quarter: 2012Q1

REPORT INFORMATION
  Report Type: 
  Country: None (occurrence: None)
  Receive Date: 20120227
  Receipt Date: 20120217
  Transmission Date: 20120608
  Serious: Yes (Hospitalization, Other)
  Sender: FDA-Public Use
  Company Number: US-MERCK-1108USA01228

PATIENT
  Age: 49 Year
  Sex: Female
  Weight: 61 kg

DRUGS (6)
  1. FOSAMAX [Suspect]
     Indication: OSTEOPOROSIS
     Route: 048
     Dates: start: 20000401, end: 20100313
  2. FOSAMAX [Suspect]
     Route: 048
     Dates: start: 20080221, end: 20080901
  3. FOSAMAX [Suspect]
     Indication: OSTEOPENIA
     Route: 048
     Dates: start: 20000401, end: 20100313
  4. ALENDRONATE SODIUM [Suspect]
     Indication: OSTEOPOROSIS
     Route: 048
     Dates: start: 20081007, end: 20090601
  5. FOSAMAX [Suspect]
     Route: 048
     Dates: start: 20070905, end: 20080101
  6. FOSAMAX [Suspect]
     Route: 048
     Dates: start: 20070905, end: 20080101

REACTIONS (32)
  - ADVERSE EVENT [None]
  - SINUS DISORDER [None]
  - COLONIC POLYP [None]
  - GASTROOESOPHAGEAL REFLUX DISEASE [None]
  - PATHOLOGICAL FRACTURE [None]
  - RESORPTION BONE INCREASED [None]
  - HYPOKALAEMIA [None]
  - DEVICE BREAKAGE [None]
  - FALL [None]
  - STRESS URINARY INCONTINENCE [None]
  - OSTEOARTHRITIS [None]
  - EPICONDYLITIS [None]
  - TOOTHACHE [None]
  - TOOTH DISORDER [None]
  - JOINT INJURY [None]
  - BACTERIAL DISEASE CARRIER [None]
  - IMPAIRED HEALING [None]
  - CYST [None]
  - ANAEMIA [None]
  - DEPRESSED MOOD [None]
  - GINGIVAL BLEEDING [None]
  - STRESS FRACTURE [None]
  - OSTEOGENESIS IMPERFECTA [None]
  - FEMUR FRACTURE [None]
  - PAIN IN JAW [None]
  - TOOTH FRACTURE [None]
  - HERPES VIRUS INFECTION [None]
  - FRACTURE NONUNION [None]
  - HIP FRACTURE [None]
  - PUBIS FRACTURE [None]
  - DEVICE FAILURE [None]
  - TOOTH IMPACTED [None]
